FAERS Safety Report 7437145-8 (Version None)
Quarter: 2011Q2

REPORT INFORMATION
  Report Type: 
  Country: None (occurrence: None)
  Receive Date: 20110426
  Receipt Date: 20110412
  Transmission Date: 20111010
  Serious: Yes (Other)
  Sender: FDA-Public Use
  Company Number: US-MYLANLABS-2011S1007778

PATIENT
  Sex: Female

DRUGS (2)
  1. LEVETIRACETAM [Suspect]
     Indication: CONVULSION
     Route: 048
     Dates: start: 20080101
  2. B12-VITAMIN [Concomitant]

REACTIONS (9)
  - ANXIETY [None]
  - IRRITABILITY [None]
  - LIBIDO DECREASED [None]
  - DRUG INEFFECTIVE [None]
  - ASTHENIA [None]
  - CONVULSION [None]
  - DYSARTHRIA [None]
  - APHASIA [None]
  - SUICIDAL IDEATION [None]
